FAERS Safety Report 7304188-4 (Version None)
Quarter: 2011Q1

REPORT INFORMATION
  Report Type: 
  Country: None (occurrence: None)
  Receive Date: 20110221
  Receipt Date: 20110202
  Transmission Date: 20110831
  Serious: Yes (Other)
  Sender: FDA-Public Use
  Company Number: US-BAYER-201024385NA

PATIENT
  Sex: Female

DRUGS (2)
  1. YAZ [Suspect]
     Indication: PRODUCT USED FOR UNKNOWN INDICATION
     Route: 048
     Dates: start: 20071001, end: 20080315
  2. YASMIN [Suspect]
     Indication: PRODUCT USED FOR UNKNOWN INDICATION
     Route: 048
     Dates: start: 20071001, end: 20080315

REACTIONS (10)
  - MIGRAINE [None]
  - ISCHAEMIC CEREBRAL INFARCTION [None]
  - NAUSEA [None]
  - HEADACHE [None]
  - DYSPNOEA [None]
  - VISION BLURRED [None]
  - HYPOAESTHESIA [None]
  - HEMIPARESIS [None]
  - FEELING ABNORMAL [None]
  - APHASIA [None]
